FAERS Safety Report 14454468 (Version 1)
Quarter: 2018Q1

REPORT INFORMATION
  Report Type: Spontaneous
  Country: IN (occurrence: IN)
  Receive Date: 20180128
  Receipt Date: 20180128
  Transmission Date: 20180509
  Serious: No
  Sender: FDA-Public Use
  Company Number: None

PATIENT
  Age: 26 Year
  Sex: Male
  Weight: 65 kg

DRUGS (4)
  1. MEDROL [Suspect]
     Active Substance: METHYLPREDNISOLONE
     Indication: URTICARIA
     Route: 048
     Dates: start: 20180127
  2. MEDROL [Suspect]
     Active Substance: METHYLPREDNISOLONE
     Indication: PRURITUS
     Route: 048
     Dates: start: 20180127
  3. LEVOCETIRIZINE [Suspect]
     Active Substance: LEVOCETIRIZINE
     Route: 048
     Dates: start: 20180127
  4. MEDROL [Suspect]
     Active Substance: METHYLPREDNISOLONE
     Indication: RASH
     Route: 048
     Dates: start: 20180127

REACTIONS (5)
  - Dry mouth [None]
  - Dysgeusia [None]
  - Abdominal discomfort [None]
  - Thirst [None]
  - Abdominal distension [None]

NARRATIVE: CASE EVENT DATE: 20180128
